FAERS Safety Report 6096569-4 (Version None)
Quarter: 2009Q1

REPORT INFORMATION
  Report Type: 
  Country: None (occurrence: None)
  Receive Date: 20090225
  Receipt Date: 20090225
  Transmission Date: 20090719
  Serious: Yes (Hospitalization)
  Sender: FDA-Public Use
  Company Number: None

PATIENT
  Sex: Male
  Weight: 77.1115 kg

DRUGS (1)
  1. REQUIP [Suspect]
     Indication: RESTLESS LEGS SYNDROME
     Dosage: 1 MG UP TO 4 MG ORAL
     Route: 048
     Dates: start: 20081210

REACTIONS (4)
  - FEAR [None]
  - PSYCHOTIC DISORDER [None]
  - RESTLESS LEGS SYNDROME [None]
  - TREATMENT NONCOMPLIANCE [None]
